FAERS Safety Report 23596929 (Version 4)
Quarter: 2025Q2

REPORT INFORMATION
  Report Type: Spontaneous
  Country: US (occurrence: US)
  Receive Date: 20240305
  Receipt Date: 20250416
  Transmission Date: 20250716
  Serious: No
  Sender: SANOFI AVENTIS
  Company Number: US-SA-SAC20240228001142

PATIENT
  Age: 71 Year
  Sex: Female

DRUGS (3)
  1. DUPIXENT [Suspect]
     Active Substance: DUPILUMAB
     Indication: Nasal polyps
     Dosage: 300MG, QOW
     Route: 058
     Dates: start: 202312
  2. JARDIANCE [Suspect]
     Active Substance: EMPAGLIFLOZIN
  3. JARDIANCE [Suspect]
     Active Substance: EMPAGLIFLOZIN

REACTIONS (3)
  - Fatigue [Unknown]
  - Injection site bruising [Not Recovered/Not Resolved]
  - Needle issue [Not Recovered/Not Resolved]

NARRATIVE: CASE EVENT DATE: 20240219
